FAERS Safety Report 9229933 (Version 1)
Quarter: 2013Q2

REPORT INFORMATION
  Report Type: Spontaneous
  Country: US (occurrence: None)
  Receive Date: 20130412
  Receipt Date: 20130412
  Transmission Date: 20140414
  Serious: No
  Sender: FDA-Public Use
  Company Number: None

PATIENT
  Age: 63 Year
  Sex: Male
  Weight: 88.4 kg

DRUGS (1)
  1. BOCEPREVIR [Suspect]
     Indication: HEPATITIS C
     Route: 048
     Dates: start: 20121024, end: 20121120

REACTIONS (6)
  - Leukopenia [None]
  - Thrombocytopenia [None]
  - Dysgeusia [None]
  - Rash [None]
  - Pruritus [None]
  - Dry skin [None]
